FAERS Safety Report 25358053 (Version 1)
Quarter: 2025Q2

REPORT INFORMATION
  Report Type: Spontaneous
  Country: ES (occurrence: ES)
  Receive Date: 20250526
  Receipt Date: 20250526
  Transmission Date: 20250717
  Serious: Yes (Life-Threatening, Hospitalization, Other)
  Sender: HIKMA
  Company Number: None

PATIENT
  Age: 59 Year
  Sex: Female

DRUGS (2)
  1. CISPLATIN [Suspect]
     Active Substance: CISPLATIN
     Indication: Ovarian stromal cancer
     Dosage: 50 MILLIGRAM/SQ. METER, 3W
     Route: 042
     Dates: start: 20250319, end: 20250409
  2. ETOPOSIDE [Suspect]
     Active Substance: ETOPOSIDE
     Indication: Ovarian stromal cancer
     Dosage: 165 MILLIGRAM/SQ. METER, 3W
     Route: 042
     Dates: start: 20250319, end: 20250409

REACTIONS (1)
  - Agranulocytosis [Recovered/Resolved]

NARRATIVE: CASE EVENT DATE: 20250424
